FAERS Safety Report 8881251 (Version 1)
Quarter: 2012Q4

REPORT INFORMATION
  Report Type: 
  Country: SK (occurrence: SK)
  Receive Date: 20121031
  Receipt Date: 20121031
  Transmission Date: 20130627
  Serious: Yes (Hospitalization)
  Sender: FDA-Public Use
  Company Number: SK-ROCHE-1149129

PATIENT
  Sex: Female

DRUGS (1)
  1. OMALIZUMAB [Suspect]
     Indication: PRODUCT USED FOR UNKNOWN INDICATION
     Dosage: last dose received on 18/oct/2012
     Route: 065

REACTIONS (5)
  - Dry mouth [Unknown]
  - Dyspnoea [Unknown]
  - Hyperhidrosis [Unknown]
  - Diplopia [Unknown]
  - Asthenia [Unknown]
